FAERS Safety Report 13716559 (Version 1)
Quarter: 2017Q3

REPORT INFORMATION
  Report Type: Report from Study
  Country: IN (occurrence: IN)
  Receive Date: 20170705
  Receipt Date: 20170705
  Transmission Date: 20171127
  Serious: Yes (Other)
  Sender: FDA-Public Use
  Company Number: PHHY2017IN096120

PATIENT
  Sex: Male

DRUGS (1)
  1. GLIVEC [Suspect]
     Active Substance: IMATINIB MESYLATE
     Indication: CHRONIC MYELOID LEUKAEMIA
     Dosage: 400 MG, UNK
     Route: 065

REACTIONS (7)
  - Pain [Unknown]
  - Night sweats [Unknown]
  - Pyrexia [Unknown]
  - Cytogenetic analysis abnormal [Unknown]
  - Headache [Unknown]
  - Weight decreased [Unknown]
  - Hepatitis B antibody positive [Unknown]
